FAERS Safety Report 8170546-1 (Version None)
Quarter: 2012Q1

REPORT INFORMATION
  Report Type: 
  Country: None (occurrence: None)
  Receive Date: 20120106
  Receipt Date: 20110422
  Transmission Date: 20120608
  Serious: Yes (Hospitalization)
  Sender: FDA-Public Use
  Company Number: US-006147

PATIENT
  Age: 49 Year
  Sex: Male
  Weight: 90.9 kg

DRUGS (3)
  1. MULTIHANCE [Suspect]
     Indication: NUCLEAR MAGNETIC RESONANCE IMAGING BRAIN
     Dosage: 15ML ONCE INTRAVENOUS (NOT OTHERWISE SPECIFIED)
     Route: 042
     Dates: start: 20110419, end: 20110419
  2. MULTIHANCE [Suspect]
     Indication: NEURITIS
     Dosage: 15ML ONCE INTRAVENOUS (NOT OTHERWISE SPECIFIED)
     Route: 042
     Dates: start: 20110419, end: 20110419
  3. MULTIHANCE [Suspect]
     Indication: MULTIPLE SCLEROSIS
     Dosage: 15ML ONCE INTRAVENOUS (NOT OTHERWISE SPECIFIED)
     Route: 042
     Dates: start: 20110419, end: 20110419

REACTIONS (4)
  - CONVULSION [None]
  - MALAISE [None]
  - GENERALISED ERYTHEMA [None]
  - VOMITING [None]
